FAERS Safety Report 20364189 (Version 1)
Quarter: 2022Q1

REPORT INFORMATION
  Report Type: Spontaneous
  Country: CA (occurrence: CA)
  Receive Date: 20220121
  Receipt Date: 20220121
  Transmission Date: 20220423
  Serious: Yes (Hospitalization)
  Sender: FDA-Public Use
  Company Number: CA-TEVA-2022-CA-2001351

PATIENT
  Age: 47 Year
  Sex: Female

DRUGS (51)
  1. CYCLOBENZAPRINE [Interacting]
     Active Substance: CYCLOBENZAPRINE
     Indication: Scoliosis
     Dosage: 30 MILLIGRAM DAILY;
     Route: 048
  2. CYCLOBENZAPRINE [Interacting]
     Active Substance: CYCLOBENZAPRINE
     Dosage: 20 MILLIGRAM DAILY;
     Route: 048
  3. FLUOXETINE HYDROCHLORIDE [Interacting]
     Active Substance: FLUOXETINE HYDROCHLORIDE
     Indication: Major depression
     Route: 048
  4. FLUOXETINE HYDROCHLORIDE [Interacting]
     Active Substance: FLUOXETINE HYDROCHLORIDE
     Dosage: 80 MILLIGRAM DAILY;
     Route: 048
  5. FLUOXETINE HYDROCHLORIDE [Interacting]
     Active Substance: FLUOXETINE HYDROCHLORIDE
     Route: 048
  6. FLUOXETINE HYDROCHLORIDE [Interacting]
     Active Substance: FLUOXETINE HYDROCHLORIDE
     Route: 048
  7. GABAPENTIN [Interacting]
     Active Substance: GABAPENTIN
     Indication: Scoliosis
     Dosage: 1600 MILLIGRAM DAILY;
     Route: 065
  8. GABAPENTIN [Interacting]
     Active Substance: GABAPENTIN
     Dosage: 1800 MILLIGRAM DAILY;
     Route: 048
  9. LORAZEPAM [Interacting]
     Active Substance: LORAZEPAM
     Indication: Withdrawal syndrome
     Route: 065
  10. LORAZEPAM [Interacting]
     Active Substance: LORAZEPAM
     Indication: Anxiety
     Route: 065
  11. LORAZEPAM [Interacting]
     Active Substance: LORAZEPAM
     Route: 065
  12. LORAZEPAM [Interacting]
     Active Substance: LORAZEPAM
     Route: 065
  13. LORAZEPAM [Interacting]
     Active Substance: LORAZEPAM
     Dosage: 8 MILLIGRAM DAILY;
     Route: 048
  14. LORAZEPAM [Interacting]
     Active Substance: LORAZEPAM
     Route: 065
  15. LORAZEPAM [Interacting]
     Active Substance: LORAZEPAM
     Dosage: 8 MILLIGRAM DAILY;
     Route: 048
  16. LORAZEPAM [Interacting]
     Active Substance: LORAZEPAM
     Route: 065
  17. LORAZEPAM [Interacting]
     Active Substance: LORAZEPAM
     Route: 065
  18. LORAZEPAM [Interacting]
     Active Substance: LORAZEPAM
     Route: 065
  19. LORAZEPAM [Interacting]
     Active Substance: LORAZEPAM
     Route: 065
  20. LORAZEPAM [Interacting]
     Active Substance: LORAZEPAM
     Route: 065
  21. LORAZEPAM [Interacting]
     Active Substance: LORAZEPAM
     Route: 065
  22. LORAZEPAM [Interacting]
     Active Substance: LORAZEPAM
     Route: 065
  23. LORAZEPAM [Interacting]
     Active Substance: LORAZEPAM
     Route: 065
  24. LORAZEPAM [Interacting]
     Active Substance: LORAZEPAM
     Route: 048
  25. LORAZEPAM [Interacting]
     Active Substance: LORAZEPAM
     Route: 065
  26. LORAZEPAM [Interacting]
     Active Substance: LORAZEPAM
     Route: 048
  27. QUETIAPINE FUMARATE [Interacting]
     Active Substance: QUETIAPINE FUMARATE
     Indication: Major depression
     Dosage: 200 MILLIGRAM DAILY;
     Route: 065
  28. QUETIAPINE FUMARATE [Interacting]
     Active Substance: QUETIAPINE FUMARATE
     Route: 048
  29. RISPERIDONE [Interacting]
     Active Substance: RISPERIDONE
     Indication: Affective disorder
     Dosage: .25 MILLIGRAM DAILY;
     Route: 048
  30. DOXEPIN HYDROCHLORIDE [Interacting]
     Active Substance: DOXEPIN HYDROCHLORIDE
     Indication: Major depression
     Route: 048
  31. DOXEPIN HYDROCHLORIDE [Interacting]
     Active Substance: DOXEPIN HYDROCHLORIDE
     Dosage: 150 MILLIGRAM DAILY;
     Route: 048
  32. DOXEPIN HYDROCHLORIDE [Interacting]
     Active Substance: DOXEPIN HYDROCHLORIDE
     Route: 048
  33. LORAZEPAM [Interacting]
     Active Substance: LORAZEPAM
     Indication: Withdrawal syndrome
     Dosage: 1 MILLIGRAM DAILY;
     Route: 030
  34. LORAZEPAM [Interacting]
     Active Substance: LORAZEPAM
     Indication: Anxiety
     Dosage: 1 MILLIGRAM DAILY;
     Route: 030
  35. LORAZEPAM [Interacting]
     Active Substance: LORAZEPAM
     Route: 030
  36. LORAZEPAM [Interacting]
     Active Substance: LORAZEPAM
     Route: 030
  37. METHADONE [Interacting]
     Active Substance: METHADONE HYDROCHLORIDE
     Indication: Drug use disorder
     Dosage: 60 MILLIGRAM DAILY;
     Route: 048
  38. METHADONE [Interacting]
     Active Substance: METHADONE HYDROCHLORIDE
     Dosage: 75 MILLIGRAM DAILY;
     Route: 048
  39. METHADONE [Interacting]
     Active Substance: METHADONE HYDROCHLORIDE
     Dosage: 50.0 MILLIGRAM
     Route: 065
  40. METHADONE [Interacting]
     Active Substance: METHADONE HYDROCHLORIDE
     Route: 065
  41. METHADONE [Interacting]
     Active Substance: METHADONE HYDROCHLORIDE
     Route: 065
  42. DIVALPROEX SODIUM [Interacting]
     Active Substance: DIVALPROEX SODIUM
     Indication: Mania
     Route: 048
  43. DIVALPROEX SODIUM [Interacting]
     Active Substance: DIVALPROEX SODIUM
     Route: 048
  44. DIVALPROEX SODIUM [Interacting]
     Active Substance: DIVALPROEX SODIUM
     Route: 048
  45. ATENOLOL [Concomitant]
     Active Substance: ATENOLOL
     Route: 065
  46. CLONIDINE [Concomitant]
     Active Substance: CLONIDINE
     Route: 065
  47. ESTRADIOL [Concomitant]
     Active Substance: ESTRADIOL
     Route: 065
  48. FUROSEMIDE [Concomitant]
     Active Substance: FUROSEMIDE
     Route: 065
  49. NALOXONE [Concomitant]
     Active Substance: NALOXONE
  50. ALBUTEROL [Concomitant]
     Active Substance: ALBUTEROL
  51. TIOTROPIUM BROMIDE MONOHYDRATE [Concomitant]
     Active Substance: TIOTROPIUM BROMIDE MONOHYDRATE
     Route: 065

REACTIONS (5)
  - Depressed level of consciousness [Unknown]
  - Respiratory depression [Unknown]
  - Toxicity to various agents [Unknown]
  - Drug interaction [Unknown]
  - Off label use [Unknown]
